FAERS Safety Report 26179193 (Version 1)
Quarter: 2025Q4

REPORT INFORMATION
  Report Type: Spontaneous
  Country: US (occurrence: US)
  Receive Date: 20251219
  Receipt Date: 20251219
  Transmission Date: 20260118
  Serious: No
  Sender: PADAGIS
  Company Number: US-PADAGIS-2025PAD01546

PATIENT

DRUGS (3)
  1. MUPIROCIN [Suspect]
     Active Substance: MUPIROCIN
     Indication: Staphylococcal infection
     Dosage: 2X DAILY
     Route: 045
     Dates: start: 20251203, end: 20251208
  2. MUPIROCIN [Suspect]
     Active Substance: MUPIROCIN
     Indication: Sinusitis
  3. KETOCONAZOLE [Concomitant]
     Active Substance: KETOCONAZOLE
     Indication: Product used for unknown indication
     Dosage: UNK
     Route: 061

REACTIONS (5)
  - Nasal dryness [Unknown]
  - Rhinalgia [Recovered/Resolved]
  - Product use in unapproved indication [Unknown]
  - Product prescribing error [Unknown]
  - Product prescribing error [Unknown]

NARRATIVE: CASE EVENT DATE: 20251203
